FAERS Safety Report 8402547-X (Version None)
Quarter: 2012Q2

REPORT INFORMATION
  Report Type: 
  Country: None (occurrence: None)
  Receive Date: 20120601
  Receipt Date: 20120530
  Transmission Date: 20120825
  Serious: Yes (Other)
  Sender: FDA-Public Use
  Company Number: PHHY2011US57109

PATIENT
  Sex: Female
  Weight: 69 kg

DRUGS (5)
  1. GILENYA [Suspect]
     Indication: MULTIPLE SCLEROSIS
     Dosage: 0.5 MG, QD
     Route: 048
     Dates: start: 20110209
  2. HYDROCHLOROTHIAZIDE [Concomitant]
     Indication: HYPERTENSION
  3. OXYBUTYNIN [Concomitant]
     Route: 048
     Dates: start: 20110110
  4. VITAMIN D [Concomitant]
     Route: 048
     Dates: start: 20110325
  5. BACLOFEN [Concomitant]
     Indication: MUSCLE SPASTICITY
     Route: 048
     Dates: start: 20110214

REACTIONS (9)
  - PARAESTHESIA [None]
  - HEADACHE [None]
  - ROAD TRAFFIC ACCIDENT [None]
  - PAIN IN EXTREMITY [None]
  - LOWER EXTREMITY MASS [None]
  - MUSCLE TIGHTNESS [None]
  - BACK INJURY [None]
  - INCREASED APPETITE [None]
  - MUSCULAR WEAKNESS [None]
